FAERS Safety Report 11043520 (Version 1)
Quarter: 2015Q2

REPORT INFORMATION
  Report Type: Spontaneous
  Country: US (occurrence: US)
  Receive Date: 20150417
  Receipt Date: 20150417
  Transmission Date: 20150821
  Serious: No
  Sender: FDA-Public Use
  Company Number: US-BIOGENIDEC-2015BI047380

PATIENT
  Age: 60 Year
  Sex: Male

DRUGS (1)
  1. TECFIDERA [Suspect]
     Active Substance: DIMETHYL FUMARATE
     Indication: PRODUCT USED FOR UNKNOWN INDICATION
     Dates: start: 20150216

REACTIONS (5)
  - Drug dose omission [Recovered/Resolved]
  - Asthenia [Recovered/Resolved]
  - Headache [Not Recovered/Not Resolved]
  - Fatigue [Recovered/Resolved]
  - Feeling jittery [Recovered/Resolved]

NARRATIVE: CASE EVENT DATE: 20150401
